FAERS Safety Report 9562415 (Version 3)
Quarter: 2013Q4

REPORT INFORMATION
  Report Type: Report from Study
  Country: IL (occurrence: IL)
  Receive Date: 20130927
  Receipt Date: 20131015
  Transmission Date: 20140711
  Serious: Yes (Other)
  Sender: FDA-Public Use
  Company Number: IL-GILEAD-2013-0079478

PATIENT
  Age: 77 Year
  Sex: Male

DRUGS (13)
  1. RANOLAZINE [Suspect]
     Indication: ATRIAL FIBRILLATION
     Dosage: 750 MG, BID
     Route: 048
     Dates: start: 20130610
  2. PLACEBO [Suspect]
     Indication: ATRIAL FIBRILLATION
     Dosage: 1 DF, BID
     Route: 048
  3. LORIVAN [Concomitant]
     Dosage: UNK
  4. CARDILOC [Concomitant]
     Dosage: UNK
  5. ASPIRIN [Concomitant]
     Indication: ANTIINFLAMMATORY THERAPY
     Dosage: UNK
     Dates: start: 20120805
  6. ASPIRIN [Concomitant]
     Indication: ANTIPLATELET THERAPY
  7. RAMITENS [Concomitant]
  8. ROSUVASTATIN [Concomitant]
     Dosage: UNK
  9. WARFARIN [Concomitant]
     Indication: ATRIAL FIBRILLATION
     Dosage: 5 MG, QD
     Dates: start: 20110824, end: 20130623
  10. WARFARIN [Concomitant]
     Dosage: 5 MG, UNK
     Dates: start: 20130626, end: 20130713
  11. WARFARIN [Concomitant]
     Dosage: 2.5 MG, QD
     Dates: start: 20130715, end: 20130717
  12. WARFARIN [Concomitant]
     Dosage: 5 MG, QD
     Dates: start: 20130718
  13. CLEXANE [Concomitant]
     Indication: ATRIAL FIBRILLATION
     Dosage: 80 MG, BID
     Dates: start: 20130623, end: 20130625

REACTIONS (1)
  - International normalised ratio increased [Recovered/Resolved]
